FAERS Safety Report 8375480-X (Version None)
Quarter: 2012Q2

REPORT INFORMATION
  Report Type: 
  Country: None (occurrence: None)
  Receive Date: 20120522
  Receipt Date: 20120516
  Transmission Date: 20120825
  Serious: Yes (Hospitalization, Other)
  Sender: FDA-Public Use
  Company Number: US-AMGEN-USASP2012030880

PATIENT
  Age: 60 Year
  Sex: Female

DRUGS (2)
  1. ENBREL [Suspect]
     Indication: RHEUMATOID ARTHRITIS
     Dosage: UNK
     Dates: start: 20110101, end: 20120301
  2. METHOTREXATE [Concomitant]
     Dosage: 1 MG, UNK

REACTIONS (2)
  - DEEP VEIN THROMBOSIS [None]
  - POLYCYTHAEMIA VERA [None]
